FAERS Safety Report 4748584-8 (Version None)
Quarter: 2005Q3

REPORT INFORMATION
  Report Type: 
  Country: None (occurrence: None)
  Receive Date: 20050819
  Receipt Date: 20050817
  Transmission Date: 20060218
  Serious: Yes (Death)
  Sender: FDA-Public Use
  Company Number: NSADSS2002032114

PATIENT
  Sex: Male

DRUGS (12)
  1. REMICADE [Suspect]
     Route: 041
     Dates: start: 20010911
  2. REMICADE [Suspect]
     Indication: RHEUMATOID ARTHRITIS
     Route: 041
     Dates: start: 20010911
  3. CYCLOSPORINE [Concomitant]
  4. DEFLAZACORT [Concomitant]
  5. ROFECOXIB [Concomitant]
  6. CALCICHEW D3 FORTE [Concomitant]
  7. METHOTREXATE [Concomitant]
     Route: 048
  8. FOLIC ACID [Concomitant]
  9. TESTOSTERONE [Concomitant]
     Route: 030
  10. PAMIDRONATE DISODIUM [Concomitant]
     Route: 041
     Dates: start: 20001201
  11. PAMIDRONATE DISODIUM [Concomitant]
     Route: 041
     Dates: start: 20001201
  12. PAMIDRONATE DISODIUM [Concomitant]
     Route: 041
     Dates: start: 20001201

REACTIONS (3)
  - BRAIN OEDEMA [None]
  - BRAIN STEM INFARCTION [None]
  - HIP ARTHROPLASTY [None]
